FAERS Safety Report 6590516-4 (Version None)
Quarter: 2010Q1

REPORT INFORMATION
  Report Type: 
  Country: None (occurrence: None)
  Receive Date: 20100219
  Receipt Date: 20100218
  Transmission Date: 20100710
  Serious: Yes (Hospitalization)
  Sender: FDA-Public Use
  Company Number: GB-ROCHE-686006

PATIENT
  Age: 32 Year
  Sex: Female

DRUGS (3)
  1. TAMIFLU [Suspect]
     Dosage: DRUG INDICATION REPORTED AS SORE THRAOT,FEVER, COUGH
     Route: 065
     Dates: start: 20100102, end: 20100103
  2. PARACETAMOL [Concomitant]
  3. IBUPROFEN [Concomitant]

REACTIONS (1)
  - EMPYEMA [None]
